FAERS Safety Report 5942150-4 (Version None)
Quarter: 2008Q4

REPORT INFORMATION
  Report Type: 
  Country: None (occurrence: None)
  Receive Date: 20081105
  Receipt Date: 20081029
  Transmission Date: 20090506
  Serious: Yes (Hospitalization)
  Sender: FDA-Public Use
  Company Number: US-AVENTIS-200518763GDDC

PATIENT
  Age: 47 Year
  Sex: Female
  Weight: 76.73 kg

DRUGS (2)
  1. TAXOTERE [Suspect]
     Route: 042
     Dates: start: 20050913, end: 20050913
  2. XELODA [Suspect]
     Route: 048
     Dates: start: 20050914, end: 20050917

REACTIONS (2)
  - AORTITIS [None]
  - DRUG HYPERSENSITIVITY [None]
